FAERS Safety Report 25668484 (Version 1)
Quarter: 2025Q3

REPORT INFORMATION
  Report Type: Report from Study
  Country: CA (occurrence: CA)
  Receive Date: 20250812
  Receipt Date: 20250812
  Transmission Date: 20251021
  Serious: Yes (Other)
  Sender: ABBVIE
  Company Number: CA-ABBVIE-6406810

PATIENT
  Age: 61 Year
  Sex: Male

DRUGS (2)
  1. HUMIRA [Suspect]
     Active Substance: ADALIMUMAB
     Indication: Crohn^s disease
     Route: 058
  2. HUMIRA [Suspect]
     Active Substance: ADALIMUMAB
     Indication: Ankylosing spondylitis

REACTIONS (6)
  - Hip arthroplasty [Recovering/Resolving]
  - Arthralgia [Unknown]
  - Exostosis [Unknown]
  - Mobility decreased [Unknown]
  - Intestinal stenosis [Unknown]
  - Liver abscess [Unknown]

NARRATIVE: CASE EVENT DATE: 20250101
